FAERS Safety Report 26163005 (Version 1)
Quarter: 2025Q4

REPORT INFORMATION
  Report Type: Spontaneous
  Country: US (occurrence: None)
  Receive Date: 20251216
  Receipt Date: 20251216
  Transmission Date: 20260118
  Serious: Yes (Hospitalization)
  Sender: FDA-CTU
  Company Number: None

PATIENT
  Age: 42 Year
  Sex: Male
  Weight: 72.6 kg

DRUGS (1)
  1. SPRYCEL [Suspect]
     Active Substance: DASATINIB
     Dates: end: 20231218

REACTIONS (8)
  - Thrombocytopenia [None]
  - Anaemia [None]
  - Hyperleukocytosis [None]
  - Blast cell count increased [None]
  - Blast cells present [None]
  - Hepatosplenomegaly [None]
  - Leukaemic infiltration hepatic [None]
  - Transfusion [None]

NARRATIVE: CASE EVENT DATE: 20231218
